FAERS Safety Report 25198847 (Version 2)
Quarter: 2025Q2

REPORT INFORMATION
  Report Type: Spontaneous
  Country: ES (occurrence: ES)
  Receive Date: 20250415
  Receipt Date: 20250625
  Transmission Date: 20250717
  Serious: Yes (Other)
  Sender: NOVARTIS
  Company Number: ES-002147023-NVSC2025ES060774

PATIENT

DRUGS (3)
  1. KESIMPTA [Suspect]
     Active Substance: OFATUMUMAB
     Indication: Product used for unknown indication
     Route: 065
  2. KESIMPTA [Suspect]
     Active Substance: OFATUMUMAB
     Route: 065
  3. KESIMPTA [Suspect]
     Active Substance: OFATUMUMAB
     Route: 065

REACTIONS (8)
  - Asphyxia [Unknown]
  - Asthma [Unknown]
  - Wheezing [Unknown]
  - Chest pain [Unknown]
  - Oropharyngeal pain [Unknown]
  - Aphonia [Unknown]
  - Cough [Unknown]
  - Productive cough [Unknown]
